FAERS Safety Report 17623065 (Version 4)
Quarter: 2020Q3

REPORT INFORMATION
  Report Type: Spontaneous
  Country: US (occurrence: US)
  Receive Date: 20200403
  Receipt Date: 20200706
  Transmission Date: 20201102
  Serious: Yes (Hospitalization)
  Sender: FDA-Public Use
  Company Number: US-VERTEX PHARMACEUTICALS-2020-007222

PATIENT
  Age: 26 Year
  Sex: Male

DRUGS (27)
  1. VITAMIN D [COLECALCIFEROL] [Concomitant]
     Active Substance: CHOLECALCIFEROL
  2. ADDERALL [Concomitant]
     Active Substance: AMPHETAMINE ASPARTATE\AMPHETAMINE SULFATE\DEXTROAMPHETAMINE SACCHARATE\DEXTROAMPHETAMINE SULFATE
  3. IRON [Concomitant]
     Active Substance: IRON
  4. URSODIOL. [Concomitant]
     Active Substance: URSODIOL
  5. PULMOZYME [Concomitant]
     Active Substance: DORNASE ALFA
  6. PHYTONADIONE. [Concomitant]
     Active Substance: PHYTONADIONE
  7. POTASSIUM CHLORIDE. [Concomitant]
     Active Substance: POTASSIUM CHLORIDE
  8. ALBUTEROL HFA [Concomitant]
     Active Substance: ALBUTEROL SULFATE
  9. VITAMIN E [Concomitant]
     Active Substance: .ALPHA.-TOCOPHEROL
  10. ZENPEP [Concomitant]
     Active Substance: PANCRELIPASE AMYLASE\PANCRELIPASE LIPASE\PANCRELIPASE PROTEASE
  11. VITAMIN A [RETINOL] [Concomitant]
     Active Substance: RETINOL
  12. AZITHROMYCIN ANHYDROUS. [Concomitant]
     Active Substance: AZITHROMYCIN ANHYDROUS
  13. AZTREONAM LYSINE [Suspect]
     Active Substance: AZTREONAM LYSINE
     Indication: BACTERIAL DISEASE CARRIER
  14. IBUPROFEN. [Concomitant]
     Active Substance: IBUPROFEN
  15. VITAMIN D+A [Concomitant]
  16. ZOLPIDEM [Concomitant]
     Active Substance: ZOLPIDEM TARTRATE
  17. LOSARTAN POTASSIUM. [Concomitant]
     Active Substance: LOSARTAN POTASSIUM
  18. ACTICAL [Concomitant]
  19. ZITHROMAX [Concomitant]
     Active Substance: AZITHROMYCIN DIHYDRATE
  20. FUROSEMIDE. [Concomitant]
     Active Substance: FUROSEMIDE
  21. TRIKAFTA [Suspect]
     Active Substance: ELEXACAFTOR\IVACAFTOR\TEZACAFTOR
     Indication: CYSTIC FIBROSIS
     Dosage: 2 ORANGE PILLS IN AM; 1 BLUE TABLET IN PM
     Route: 048
     Dates: start: 201912
  22. MEPHYTON [Concomitant]
     Active Substance: PHYTONADIONE
  23. CAYSTON [Concomitant]
     Active Substance: AZTREONAM
  24. AZTREONAM LYSINE [Suspect]
     Active Substance: AZTREONAM LYSINE
     Indication: CYSTIC FIBROSIS
     Dosage: 75 MG, TID QOM
     Dates: start: 20200430
  25. ALBUTEROL [SALBUTAMOL SULFATE] [Concomitant]
     Active Substance: ALBUTEROL SULFATE
  26. FEROSUL [Concomitant]
     Active Substance: FERROUS SULFATE
  27. VITAMIN D3 [Concomitant]
     Active Substance: CHOLECALCIFEROL

REACTIONS (1)
  - Ascites [Unknown]

NARRATIVE: CASE EVENT DATE: 202005
